FAERS Safety Report 23395123 (Version 2)
Quarter: 2024Q1

REPORT INFORMATION
  Report Type: Report from Study
  Country: US (occurrence: US)
  Receive Date: 20240112
  Receipt Date: 20240206
  Transmission Date: 20240409
  Serious: Yes (Death)
  Sender: FDA-Public Use
  Company Number: US-ACADIA PHARMACEUTICALS INC.-ACA-2024-PIM-000047

PATIENT
  Sex: Male
  Weight: 74 kg

DRUGS (10)
  1. NUPLAZID [Suspect]
     Active Substance: PIMAVANSERIN TARTRATE
     Indication: Parkinson^s disease
     Dosage: 34 MILLIGRAM, QD
     Route: 048
     Dates: start: 202204
  2. ASPIRIN [Concomitant]
     Active Substance: ASPIRIN
     Dosage: 81 MILLIGRAM, QD
     Route: 048
  3. CHLORTHALIDONE [Concomitant]
     Active Substance: CHLORTHALIDONE
     Dosage: 1 GRAM, BID
     Route: 048
  4. HUMALOG [Concomitant]
     Active Substance: INSULIN LISPRO
     Dosage: 100 UNIT/ML
  5. LACOSAMIDE [Concomitant]
     Active Substance: LACOSAMIDE
     Dosage: 100 MILLIGRAM, QD
     Route: 048
  6. LANTUS SOLOSTAR [Concomitant]
     Active Substance: INSULIN GLARGINE
     Dosage: 100 UNIT/ML
     Route: 058
  7. LINZESS [Concomitant]
     Active Substance: LINACLOTIDE
     Dosage: 290 MCG
     Route: 048
  8. RYTARY [Concomitant]
     Active Substance: CARBIDOPA\LEVODOPA
     Dosage: 61.25-245 MG, EXTENTED RELEASE 4 TIMES A DAY
     Route: 048
  9. STOOL SOFTENER (DOCUSATE) [Concomitant]
     Active Substance: DOCUSATE
     Dosage: 100 MILLIGRAM
     Route: 048
  10. VIMPAT [Concomitant]
     Active Substance: LACOSAMIDE
     Dosage: 100 MILLIGRAM, QD
     Route: 048

REACTIONS (1)
  - Parkinson^s disease [Fatal]
